FAERS Safety Report 4388161-4 (Version None)
Quarter: 2004Q2

REPORT INFORMATION
  Report Type: 
  Country: None (occurrence: None)
  Receive Date: 20040623
  Receipt Date: 20040604
  Transmission Date: 20050107
  Serious: Yes (Life-Threatening, Hospitalization)
  Sender: FDA-Public Use
  Company Number: USA040669310

PATIENT
  Age: 52 Year
  Sex: Female
  Weight: 114 kg

DRUGS (3)
  1. HUMULIN N [Suspect]
     Indication: DIABETES MELLITUS
     Dosage: 80 U/2 DAY
     Dates: start: 19880101
  2. HUMULIN R [Suspect]
     Indication: DIABETES MELLITUS
     Dosage: 20 U/2 DAY
     Dates: start: 19880101, end: 20040101
  3. HUMALOG [Suspect]
     Indication: DIABETES MELLITUS
     Dates: start: 20040101

REACTIONS (6)
  - CARDIAC ARREST [None]
  - DISLOCATION OF VERTEBRA [None]
  - KNEE ARTHROPLASTY [None]
  - MYOCARDIAL INFARCTION [None]
  - PHARMACEUTICAL PRODUCT COMPLAINT [None]
  - WEIGHT DECREASED [None]
